FAERS Safety Report 9310885 (Version 1)
Quarter: 2013Q1

REPORT INFORMATION
  Report Type: Spontaneous
  Country: US (occurrence: None)
  Receive Date: 20130212
  Receipt Date: 20130212
  Transmission Date: 20140127
  Serious: Yes (Other)
  Sender: FDA-Public Use
  Company Number: 08-AUR-08448

PATIENT
  Age: 33 Year
  Sex: Female

DRUGS (5)
  1. METFORMIN (METFORMIN) [Suspect]
     Route: 048
  2. PREDNISOLONE (PREDNISOLONE) [Suspect]
  3. ACTOS (PIOGLITAZONE) [Suspect]
  4. PIOGLITAZONE (PIOGLITAZONE) [Suspect]
  5. INSULIN (INSULIN) [Concomitant]

REACTIONS (4)
  - Uveitis [None]
  - Diabetes mellitus inadequate control [None]
  - Macular oedema [None]
  - Aneurysm [None]
